FAERS Safety Report 4313857-X (Version None)
Quarter: 2004Q1

REPORT INFORMATION
  Report Type: 
  Country: None (occurrence: None)
  Receive Date: 20040305
  Receipt Date: 20040219
  Transmission Date: 20041129
  Serious: Yes (Death)
  Sender: FDA-Public Use
  Company Number: 30018665-R04A132-1

PATIENT

DRUGS (1)
  1. DIANEAL PD-2 W/ DEXTROSE 1.5% [Suspect]
     Indication: PERITONEAL DIALYSIS

REACTIONS (3)
  - FLUID OVERLOAD [None]
  - PERICARDITIS [None]
  - PHARMACEUTICAL PRODUCT COMPLAINT [None]
